FAERS Safety Report 25864793 (Version 1)
Quarter: 2025Q3

REPORT INFORMATION
  Report Type: Spontaneous
  Country: US (occurrence: None)
  Receive Date: 20250929
  Receipt Date: 20250929
  Transmission Date: 20251021
  Serious: Yes (Hospitalization)
  Sender: FDA-CTU
  Company Number: None

PATIENT
  Sex: Male

DRUGS (1)
  1. VOSEVI [Suspect]
     Active Substance: SOFOSBUVIR\VELPATASVIR\VOXILAPREVIR
     Indication: Hepatitis C
     Dosage: 400 MG  DAILY ORAL
     Route: 048
     Dates: start: 20250530

REACTIONS (4)
  - Loss of consciousness [None]
  - Blood glucose increased [None]
  - Insurance issue [None]
  - Therapy interrupted [None]
